FAERS Safety Report 5631116-X (Version None)
Quarter: 2008Q1

REPORT INFORMATION
  Report Type: 
  Country: None (occurrence: None)
  Receive Date: 20080219
  Receipt Date: 20080208
  Transmission Date: 20080703
  Serious: Yes (Other)
  Sender: FDA-Public Use
  Company Number: GB-PFIZER INC-2008013093

PATIENT
  Age: 56 Year
  Sex: Male
  Weight: 79 kg

DRUGS (3)
  1. CHANTIX [Suspect]
     Indication: SMOKING CESSATION THERAPY
     Route: 048
     Dates: start: 20071108, end: 20080114
  2. CHLOROQUINE PHOSPHATE [Concomitant]
     Route: 048
     Dates: start: 20080103, end: 20080122
  3. PROGUANIL [Concomitant]
     Route: 048
     Dates: start: 20080103, end: 20080122

REACTIONS (5)
  - ABNORMAL DREAMS [None]
  - DEPRESSION [None]
  - MENTAL IMPAIRMENT [None]
  - NIGHTMARE [None]
  - PANIC DISORDER [None]
